FAERS Safety Report 8896304 (Version 1)
Quarter: 2012Q4

REPORT INFORMATION
  Report Type: 
  Country: US (occurrence: None)
  Receive Date: 20121106
  Receipt Date: 20121106
  Transmission Date: 20130627
  Serious: No
  Sender: FDA-Public Use
  Company Number: None

PATIENT
  Sex: Male
  Weight: 70.86 kg

DRUGS (1)
  1. ALFA 3 INTERFERON 2B [Suspect]
     Dosage: 572 million IU

REACTIONS (3)
  - Blood creatine phosphokinase increased [None]
  - Oral candidiasis [None]
  - Mucosal infection [None]
